FAERS Safety Report 9285978 (Version 1)
Quarter: 2013Q2

REPORT INFORMATION
  Report Type: Spontaneous
  Country: US (occurrence: None)
  Receive Date: 20130510
  Receipt Date: 20130510
  Transmission Date: 20140414
  Serious: Yes (Hospitalization)
  Sender: FDA-Public Use
  Company Number: None

PATIENT
  Age: 75 Year
  Sex: Female

DRUGS (1)
  1. RIFAMPIN [Suspect]
     Indication: LATENT TUBERCULOSIS
     Route: 048
     Dates: start: 20130422, end: 20130423

REACTIONS (7)
  - Dizziness [None]
  - Abdominal pain upper [None]
  - Pyrexia [None]
  - Tremor [None]
  - Malaise [None]
  - Dehydration [None]
  - Vomiting [None]
